FAERS Safety Report 24188433 (Version 1)
Quarter: 2024Q3

REPORT INFORMATION
  Report Type: Spontaneous
  Country: US (occurrence: US)
  Receive Date: 20240808
  Receipt Date: 20240808
  Transmission Date: 20241016
  Serious: No
  Sender: OTSUKA
  Company Number: US-OTSUKA-2023_024884

PATIENT

DRUGS (3)
  1. ABILIFY [Interacting]
     Active Substance: ARIPIPRAZOLE
     Indication: Product used for unknown indication
     Dosage: 10 MG
     Route: 065
     Dates: start: 20230901
  2. ABILIFY [Interacting]
     Active Substance: ARIPIPRAZOLE
     Dosage: 5 MG
     Route: 065
     Dates: start: 202309
  3. MYRBETRIQ [Interacting]
     Active Substance: MIRABEGRON
     Indication: Product used for unknown indication
     Dosage: UNK
     Route: 065

REACTIONS (2)
  - Adverse drug reaction [Unknown]
  - Drug interaction [Unknown]

NARRATIVE: CASE EVENT DATE: 20230901
